FAERS Safety Report 20108295 (Version 1)
Quarter: 2021Q4

REPORT INFORMATION
  Report Type: Spontaneous
  Country: CO (occurrence: CO)
  Receive Date: 20211124
  Receipt Date: 20211124
  Transmission Date: 20220303
  Serious: Yes (Other)
  Sender: FDA-Public Use
  Company Number: CO-BAYER-2021A253959

PATIENT
  Age: 15 Year
  Sex: Male

DRUGS (1)
  1. KOVALTRY [Suspect]
     Active Substance: ANTIHEMOPHILIC FACTOR, HUMAN RECOMBINANT
     Indication: Factor VIII deficiency
     Dosage: 3500 IU TWICE A WEEK (TUESDAY - FRIDAY)
     Route: 042
     Dates: start: 20210226

REACTIONS (5)
  - Haemarthrosis [None]
  - Arthralgia [None]
  - Oedema peripheral [None]
  - Feeling hot [None]
  - Joint range of motion decreased [None]

NARRATIVE: CASE EVENT DATE: 20211112
